FAERS Safety Report 4401510-3 (Version None)
Quarter: 2004Q3

REPORT INFORMATION
  Report Type: 
  Country: None (occurrence: None)
  Receive Date: 20040719
  Receipt Date: 20030915
  Transmission Date: 20050211
  Serious: Yes (Other)
  Sender: FDA-Public Use
  Company Number: GB-BRISTOL-MYERS SQUIBB COMPANY-12382636

PATIENT
  Age: 42 Year
  Sex: Female

DRUGS (2)
  1. PRAVASTATIN [Suspect]
     Indication: LIPIDS INCREASED
     Route: 048
     Dates: start: 20020101
  2. LISINOPRIL [Suspect]
     Indication: HYPERTENSION
     Route: 048

REACTIONS (2)
  - ABORTION MISSED [None]
  - PREGNANCY [None]
